FAERS Safety Report 5642785-2 (Version None)
Quarter: 2008Q1

REPORT INFORMATION
  Report Type: 
  Country: None (occurrence: None)
  Receive Date: 20080228
  Receipt Date: 20080219
  Transmission Date: 20080703
  Serious: Yes (Hospitalization)
  Sender: FDA-Public Use
  Company Number: US-AMGEN-KDL266219

PATIENT
  Sex: Female

DRUGS (2)
  1. ENBREL [Suspect]
     Indication: RHEUMATOID ARTHRITIS
     Route: 058
     Dates: start: 20060915
  2. ENBREL [Suspect]
     Indication: PSORIASIS

REACTIONS (4)
  - ANKLE FRACTURE [None]
  - ARTHRALGIA [None]
  - PSORIASIS [None]
  - SKIN EROSION [None]
